FAERS Safety Report 4490580-2 (Version None)
Quarter: 2004Q4

REPORT INFORMATION
  Report Type: 
  Country: None (occurrence: None)
  Receive Date: 20041102
  Receipt Date: 20041027
  Transmission Date: 20050328
  Serious: Yes (Death, Life-Threatening, Hospitalization)
  Sender: FDA-Public Use
  Company Number: 200414068FR

PATIENT
  Age: 81 Year
  Sex: Male

DRUGS (9)
  1. LASILIX 40 MG [Suspect]
     Route: 048
  2. FLUOROURACIL [Suspect]
     Route: 042
     Dates: start: 20030325, end: 20030328
  3. CISPLATIN [Suspect]
     Route: 042
     Dates: start: 20030325, end: 20030328
  4. ISOPTINE LP 240 MG [Concomitant]
     Route: 048
  5. ZYLORIC [Concomitant]
     Route: 048
  6. OGAST [Concomitant]
     Route: 048
  7. TARDYFERON [Concomitant]
     Route: 048
  8. PERMIXON [Concomitant]
     Route: 048
  9. DIFFU K [Concomitant]
     Route: 048

REACTIONS (10)
  - CARDIO-RESPIRATORY ARREST [None]
  - CARDIOPULMONARY FAILURE [None]
  - DEHYDRATION [None]
  - DIABETES MELLITUS [None]
  - GLUCOSE TOLERANCE IMPAIRED [None]
  - HYPOKALAEMIA [None]
  - HYPONATRAEMIA [None]
  - POST PROCEDURAL DIARRHOEA [None]
  - POST PROCEDURAL VOMITING [None]
  - RENAL FAILURE [None]
